FAERS Safety Report 9797659 (Version 2)
Quarter: 2014Q1

REPORT INFORMATION
  Report Type: Spontaneous
  Country: US (occurrence: US)
  Receive Date: 20140106
  Receipt Date: 20140207
  Transmission Date: 20141002
  Serious: No
  Sender: FDA-Public Use
  Company Number: US-PFIZER INC-2014002475

PATIENT
  Sex: Female

DRUGS (2)
  1. LYRICA [Suspect]
     Dosage: 50 MG, UNK
     Dates: start: 20131122
  2. LYRICA [Suspect]
     Dosage: 25 MG, UNK
     Dates: start: 20140103

REACTIONS (2)
  - Joint swelling [Recovered/Resolved]
  - Weight increased [Not Recovered/Not Resolved]
